FAERS Safety Report 19899817 (Version 1)
Quarter: 2021Q3

REPORT INFORMATION
  Report Type: Spontaneous
  Country: US (occurrence: US)
  Receive Date: 20210929
  Receipt Date: 20210929
  Transmission Date: 20211014
  Serious: No
  Sender: FDA-Public Use
  Company Number: None

PATIENT
  Age: 61 Year
  Sex: Female
  Weight: 85 kg

DRUGS (2)
  1. SERTRALINE (SERTRALINE HCL 25MG TAB) [Suspect]
     Active Substance: SERTRALINE HYDROCHLORIDE
     Indication: APPETITE DISORDER
     Route: 048
     Dates: start: 20210705, end: 20210705
  2. SERTRALINE (SERTRALINE HCL 25MG TAB) [Suspect]
     Active Substance: SERTRALINE HYDROCHLORIDE
     Indication: DEPRESSION
     Route: 048
     Dates: start: 20210705, end: 20210705

REACTIONS (6)
  - Torsade de pointes [None]
  - Haemodialysis [None]
  - Electrocardiogram QT prolonged [None]
  - Ventricular tachycardia [None]
  - Cardio-respiratory arrest [None]
  - Tachycardia [None]

NARRATIVE: CASE EVENT DATE: 20210705
